FAERS Safety Report 7084623-X (Version None)
Quarter: 2010Q4

REPORT INFORMATION
  Report Type: 
  Country: None (occurrence: None)
  Receive Date: 20101104
  Receipt Date: 20101025
  Transmission Date: 20110411
  Serious: Yes (Other)
  Sender: FDA-Public Use
  Company Number: PHHY2010CH71345

PATIENT
  Sex: Female

DRUGS (2)
  1. RASILEZ [Suspect]
     Dosage: 150 MG, UNK
     Dates: start: 20090301
  2. DILTIAZEM [Concomitant]
     Dosage: 2 X 60 MG
     Dates: start: 20090301

REACTIONS (2)
  - CARDIAC OPERATION [None]
  - VERTIGO [None]
